FAERS Safety Report 5632456-0 (Version None)
Quarter: 2008Q1

REPORT INFORMATION
  Report Type: 
  Country: None (occurrence: None)
  Receive Date: 20080131
  Receipt Date: 20071004
  Transmission Date: 20080703
  Serious: No
  Sender: FDA-Public Use
  Company Number: 163-21880-07100336

PATIENT
  Age: 79 Year
  Sex: Male

DRUGS (2)
  1. REVLIMID [Suspect]
     Indication: MYELODYSPLASTIC SYNDROME
     Dosage: 10 MG, DAILY 3 WEEKS ON AND 1 WEEK OFF, ORAL ; 10 MG, DAILY 2 WEEKS ON AND 1 WEEK OFF, ORAL
     Route: 048
     Dates: start: 20070530, end: 20070626
  2. REVLIMID [Suspect]
     Indication: MYELODYSPLASTIC SYNDROME
     Dosage: 10 MG, DAILY 3 WEEKS ON AND 1 WEEK OFF, ORAL ; 10 MG, DAILY 2 WEEKS ON AND 1 WEEK OFF, ORAL
     Route: 048
     Dates: start: 20070802

REACTIONS (3)
  - CONSTIPATION [None]
  - OEDEMA PERIPHERAL [None]
  - RASH [None]
